FAERS Safety Report 7345631-4 (Version None)
Quarter: 2011Q1

REPORT INFORMATION
  Report Type: 
  Country: None (occurrence: None)
  Receive Date: 20110310
  Receipt Date: 20110304
  Transmission Date: 20110831
  Serious: Yes (Other)
  Sender: FDA-Public Use
  Company Number: A0916769A

PATIENT
  Age: 39 Year
  Sex: Female

DRUGS (3)
  1. ADVAIR DISKUS 100/50 [Suspect]
     Indication: ASTHMA
     Route: 055
     Dates: start: 20100401, end: 20110201
  2. VERAMYST [Concomitant]
  3. ALBUTEROL [Concomitant]

REACTIONS (1)
  - ADRENAL INSUFFICIENCY [None]
